FAERS Safety Report 12906953 (Version 1)
Quarter: 2016Q4

REPORT INFORMATION
  Report Type: Spontaneous
  Country: CZ (occurrence: CZ)
  Receive Date: 20161103
  Receipt Date: 20161103
  Transmission Date: 20170207
  Serious: Yes (Other)
  Sender: FDA-Public Use
  Company Number: CZ-CELGENEUS-CZE-2016105667

PATIENT
  Age: 65 Year
  Sex: Female

DRUGS (2)
  1. VIDAZA [Suspect]
     Active Substance: AZACITIDINE
     Route: 058
     Dates: start: 20161019
  2. VIDAZA [Suspect]
     Active Substance: AZACITIDINE
     Indication: MYELODYSPLASTIC SYNDROME
     Route: 058

REACTIONS (12)
  - Supraventricular tachycardia [Unknown]
  - Febrile neutropenia [Unknown]
  - Injection site erythema [Unknown]
  - Vomiting [Unknown]
  - Neutropenia [Unknown]
  - Nausea [Unknown]
  - Bronchitis [Unknown]
  - Urinary tract infection [Unknown]
  - Decreased appetite [Unknown]
  - Pyrexia [Unknown]
  - Bone pain [Unknown]
  - Constipation [Unknown]
